FAERS Safety Report 20791814 (Version 1)
Quarter: 2022Q2

REPORT INFORMATION
  Report Type: Other
  Country: TR (occurrence: None)
  Receive Date: 20220505
  Receipt Date: 20220505
  Transmission Date: 20220721
  Serious: Yes (Hospitalization)
  Sender: FDA-Public Use
  Company Number: TR-Merck Healthcare KGaA-9318235

PATIENT
  Age: 17 Year
  Sex: Male

DRUGS (5)
  1. CHORIOGONADOTROPIN ALFA [Suspect]
     Active Substance: CHORIOGONADOTROPIN ALFA
     Indication: Prophylaxis
     Dosage: FROM THE LAST 3 WEEKS
  2. OXYMETHOLONE [Suspect]
     Active Substance: OXYMETHOLONE
     Indication: Steroid therapy
     Route: 048
  3. OXANDROLONE [Suspect]
     Active Substance: OXANDROLONE
     Indication: Steroid therapy
     Route: 048
  4. MESTEROLONE [Suspect]
     Active Substance: MESTEROLONE
     Indication: Steroid therapy
     Route: 048
  5. METHANDROSTENOLONE [Suspect]
     Active Substance: METHANDROSTENOLONE
     Indication: Steroid therapy
     Route: 048

REACTIONS (4)
  - Psychotic disorder [Recovering/Resolving]
  - Catatonia [Recovering/Resolving]
  - Steroid withdrawal syndrome [Recovering/Resolving]
  - Off label use [Unknown]
